FAERS Safety Report 8588323-6 (Version None)
Quarter: 2012Q3

REPORT INFORMATION
  Report Type: 
  Country: None (occurrence: None)
  Receive Date: 20120813
  Receipt Date: 20120731
  Transmission Date: 20120928
  Serious: Yes (Other)
  Sender: FDA-Public Use
  Company Number: BR-ELI_LILLY_AND_COMPANY-BR201207001873

PATIENT
  Sex: Female
  Weight: 120 kg

DRUGS (4)
  1. CYMBALTA [Suspect]
     Indication: DEPRESSION
     Dosage: 60 MG, TID
     Route: 048
     Dates: start: 20120501
  2. DEPAKENE [Concomitant]
     Indication: BIPOLAR DISORDER
     Dosage: UNK, UNKNOWN
     Route: 065
  3. IMIPRAMINE HCL [Concomitant]
     Dosage: 3 DF, BID
     Route: 065
  4. CLONAZEPAM [Concomitant]
     Indication: SLEEP DISORDER
     Dosage: UNK, UNKNOWN
     Route: 065

REACTIONS (3)
  - PANIC DISORDER [None]
  - OVERDOSE [None]
  - BIPOLAR DISORDER [None]
